FAERS Safety Report 8935354 (Version 1)
Quarter: 2012Q4

REPORT INFORMATION
  Report Type: Spontaneous
  Country: US (occurrence: None)
  Receive Date: 20121127
  Receipt Date: 20121127
  Transmission Date: 20130627
  Serious: No
  Sender: FDA-Public Use
  Company Number: None

PATIENT
  Sex: Male
  Weight: 74.84 kg

DRUGS (1)
  1. TERBINAFINE [Suspect]
     Indication: JOCK ITCH
     Dates: start: 20121123, end: 20121125

REACTIONS (2)
  - Product label issue [None]
  - Device material issue [None]
